FAERS Safety Report 20130944 (Version 4)
Quarter: 2021Q4

REPORT INFORMATION
  Report Type: Report from Study
  Country: KR (occurrence: KR)
  Receive Date: 20211130
  Receipt Date: 20211213
  Transmission Date: 20220303
  Serious: Yes (Death, Hospitalization)
  Sender: FDA-Public Use
  Company Number: KR-BoehringerIngelheim-2021-BI-140193

PATIENT
  Age: 71 Year
  Sex: Male
  Weight: 47 kg

DRUGS (5)
  1. NINTEDANIB [Suspect]
     Active Substance: NINTEDANIB
     Indication: Idiopathic pulmonary fibrosis
     Route: 048
     Dates: start: 20171122, end: 20180227
  2. NINTEDANIB [Suspect]
     Active Substance: NINTEDANIB
     Route: 048
     Dates: start: 20180228, end: 20211119
  3. NEXIUM [Concomitant]
     Active Substance: ESOMEPRAZOLE MAGNESIUM
     Indication: Gastrooesophageal reflux disease
     Route: 048
     Dates: start: 20200929
  4. MEDILAC DS [Concomitant]
     Indication: Diarrhoea
     Route: 048
     Dates: start: 20180228
  5. SILDENAFIL CITRATE [Concomitant]
     Active Substance: SILDENAFIL CITRATE
     Indication: Pulmonary hypertension
     Route: 048
     Dates: start: 20200210

REACTIONS (2)
  - Pneumonia [Fatal]
  - Haematochezia [Recovered/Resolved]

NARRATIVE: CASE EVENT DATE: 20211116
